FAERS Safety Report 8604491-1 (Version None)
Quarter: 2012Q3

REPORT INFORMATION
  Report Type: 
  Country: None (occurrence: None)
  Receive Date: 20120820
  Receipt Date: 20120814
  Transmission Date: 20120928
  Serious: Yes (Hospitalization)
  Sender: FDA-Public Use
  Company Number: FR-PFIZER INC-2012197997

PATIENT
  Age: 73 Year
  Sex: Male

DRUGS (4)
  1. PRAZEPAM [Concomitant]
  2. AMLODIPINE BESYLATE [Suspect]
     Dosage: 5 MG, 1X/DAY
     Route: 048
     Dates: end: 20120730
  3. NEXIUM [Concomitant]
  4. LITHIUM CARBONATE [Suspect]
     Dosage: 800 MG, 1X/DAY
     Route: 048
     Dates: end: 20120730

REACTIONS (2)
  - DYSPHAGIA [None]
  - PNEUMONIA ASPIRATION [None]
